FAERS Safety Report 5619158-1 (Version None)
Quarter: 2008Q1

REPORT INFORMATION
  Report Type: 
  Country: None (occurrence: None)
  Receive Date: 20080205
  Receipt Date: 20071206
  Transmission Date: 20080703
  Serious: Yes (Hospitalization)
  Sender: FDA-Public Use
  Company Number: US022367

PATIENT
  Sex: Female

DRUGS (11)
  1. ACTIQ [Suspect]
     Indication: HEADACHE
     Dosage: 400 UG PRN BUCCAL
     Route: 002
     Dates: start: 20030101
  2. XANAX [Concomitant]
  3. LORTAB [Concomitant]
  4. AMBIEN [Concomitant]
  5. PHENERGAN HCL [Concomitant]
  6. PERCOCET [Concomitant]
  7. PROTONIX [Concomitant]
  8. ZOLOFT [Concomitant]
  9. ESGIC-PLUS [Concomitant]
  10. SOMA [Concomitant]
  11. DURAGESIC-100 [Concomitant]

REACTIONS (8)
  - DEPENDENCE [None]
  - DRUG SCREEN POSITIVE [None]
  - FLIGHT OF IDEAS [None]
  - LEGAL PROBLEM [None]
  - OVERDOSE [None]
  - PARANOIA [None]
  - PRESSURE OF SPEECH [None]
  - TOOTH LOSS [None]
